FAERS Safety Report 11990151 (Version 2)
Quarter: 2016Q1

REPORT INFORMATION
  Report Type: Report from Study
  Country: US (occurrence: US)
  Receive Date: 20160202
  Receipt Date: 20160203
  Transmission Date: 20160526
  Serious: Yes (Other)
  Sender: FDA-Public Use
  Company Number: US-AMGEN-USASL2016010166

PATIENT
  Age: 38 Year
  Sex: Male

DRUGS (1)
  1. ENBREL [Suspect]
     Active Substance: ETANERCEPT
     Indication: ANKYLOSING SPONDYLITIS
     Dosage: UNK
     Route: 065

REACTIONS (7)
  - Speech disorder [Unknown]
  - Staphylococcal infection [Unknown]
  - Pulmonary thrombosis [Unknown]
  - Renal failure [Unknown]
  - Vocal cord disorder [Unknown]
  - Diabetes mellitus [Unknown]
  - Thyroid neoplasm [Unknown]
